FAERS Safety Report 7998159-2 (Version None)
Quarter: 2011Q4

REPORT INFORMATION
  Report Type: 
  Country: None (occurrence: None)
  Receive Date: 20111221
  Receipt Date: 20110311
  Transmission Date: 20120403
  Serious: No
  Sender: FDA-Public Use
  Company Number: US-GLAXOSMITHKLINE-A0918308A

PATIENT
  Age: 26 Year
  Sex: Female
  Weight: 106.8 kg

DRUGS (5)
  1. ANTIDEPRESSANT (UNSPECIFIED) [Concomitant]
  2. LOVAZA [Suspect]
     Indication: MENSTRUAL DISORDER
     Dosage: 2G PER DAY
     Route: 048
     Dates: end: 20110228
  3. UNSPECIFIED MEDICATION [Concomitant]
     Indication: MENSTRUAL DISORDER
  4. BIRTH CONTROL [Concomitant]
  5. ZOLOFT [Suspect]
     Dosage: 200MGD PER DAY
     Dates: start: 20090101

REACTIONS (2)
  - MENORRHAGIA [None]
  - DRUG INTERACTION [None]
